FAERS Safety Report 6293631-8 (Version None)
Quarter: 2009Q3

REPORT INFORMATION
  Report Type: 
  Country: None (occurrence: None)
  Receive Date: 20090730
  Receipt Date: 20090715
  Transmission Date: 20100115
  Serious: Yes (Other)
  Sender: FDA-Public Use
  Company Number: OPER20090137

PATIENT
  Age: 58 Year
  Sex: Male
  Weight: 145.151 kg

DRUGS (5)
  1. OPANA ER [Suspect]
     Indication: PAIN
     Dosage: 80 MG, DAILY, PER ORAL;  20 MG, BID, PER ORAL
     Route: 048
     Dates: start: 20090701
  2. OPANA ER [Suspect]
     Indication: PAIN
     Dosage: 80 MG, DAILY, PER ORAL;  20 MG, BID, PER ORAL
     Route: 048
     Dates: start: 20090707
  3. ANTIHYPERTENSIVE [Concomitant]
  4. CHOLESTEROL TABLETS [Concomitant]
  5. EFFEXOR [Concomitant]

REACTIONS (1)
  - INADEQUATE ANALGESIA [None]
